FAERS Safety Report 6850071-8 (Version None)
Quarter: 2010Q3

REPORT INFORMATION
  Report Type: 
  Country: None (occurrence: None)
  Receive Date: 20100716
  Receipt Date: 20081218
  Transmission Date: 20110219
  Serious: No
  Sender: FDA-Public Use
  Company Number: US-PFIZER INC-2007085306

PATIENT
  Sex: Female
  Weight: 70.748 kg

DRUGS (10)
  1. CHANTIX [Suspect]
     Dosage: 0.5 MG, 1X/DAY
     Dates: start: 20071003, end: 20080101
  2. PREDNISONE [Concomitant]
     Indication: ARTHRITIS
     Dosage: 6 MG, AS NEEDED
  3. PLAQUENIL [Concomitant]
  4. LOPERAMIDE [Concomitant]
  5. ALL OTHER THERAPEUTIC PRODUCTS [Concomitant]
  6. BENADRYL [Concomitant]
     Dosage: 25 MG, UNK
  7. ZOLOFT [Concomitant]
     Dosage: 50 MG, UNK
  8. ALBUTEROL [Concomitant]
     Dosage: UNK
  9. LEKOVIT CA [Concomitant]
     Dosage: 600 UNK, 2X/DAY
  10. PRILOSEC [Concomitant]
     Dosage: 20 UNK, UNK

REACTIONS (1)
  - SINUSITIS [None]
